FAERS Safety Report 5444416-3 (Version None)
Quarter: 2007Q3

REPORT INFORMATION
  Report Type: 
  Country: None (occurrence: None)
  Receive Date: 20070906
  Receipt Date: 20070828
  Transmission Date: 20080115
  Serious: Yes (Disabling)
  Sender: FDA-Public Use
  Company Number: PHBS2007HU14238

PATIENT
  Age: 66 Year
  Sex: Male

DRUGS (1)
  1. LESCOL [Suspect]

REACTIONS (2)
  - AGGRESSION [None]
  - DEPRESSION [None]
